FAERS Safety Report 24294581 (Version 1)
Quarter: 2024Q3

REPORT INFORMATION
  Report Type: Spontaneous
  Country: US (occurrence: US)
  Receive Date: 20240906
  Receipt Date: 20240906
  Transmission Date: 20241017
  Serious: Yes (Hospitalization, Other)
  Sender: SANOFI AVENTIS
  Company Number: US-SA-2024SA256683

PATIENT
  Age: 80 Year
  Sex: Female

DRUGS (13)
  1. DUPIXENT [Suspect]
     Active Substance: DUPILUMAB
     Indication: Asthma
     Dosage: 300 MG, QOW
     Route: 058
     Dates: start: 20240729
  2. SPIRIVA [Suspect]
     Active Substance: TIOTROPIUM BROMIDE MONOHYDRATE
  3. NEBIVOLOL [Suspect]
     Active Substance: NEBIVOLOL
  4. ATORVASTATIN [Concomitant]
     Active Substance: ATORVASTATIN
  5. BUDESONIDE [Concomitant]
     Active Substance: BUDESONIDE
  6. CLOPIDOGREL [Concomitant]
     Active Substance: CLOPIDOGREL BISULFATE
  7. ELIQUIS [Concomitant]
     Active Substance: APIXABAN
  8. FORMOTEROL FUMARATE [Concomitant]
     Active Substance: FORMOTEROL FUMARATE
  9. GABAPENTIN [Concomitant]
     Active Substance: GABAPENTIN
  10. IBUPROFEN [Concomitant]
     Active Substance: IBUPROFEN
  11. PREDNISONE [Concomitant]
     Active Substance: PREDNISONE
  12. TRAMADOL HCL [Concomitant]
     Active Substance: TRAMADOL HYDROCHLORIDE
  13. TYLENOL [Concomitant]
     Active Substance: ACETAMINOPHEN

REACTIONS (4)
  - Atrial fibrillation [Unknown]
  - Chest pain [Unknown]
  - Bronchospasm paradoxical [Unknown]
  - Dizziness [Unknown]

NARRATIVE: CASE EVENT DATE: 20240701
